FAERS Safety Report 16169202 (Version 1)
Quarter: 2019Q2

REPORT INFORMATION
  Report Type: Spontaneous
  Country: US (occurrence: US)
  Receive Date: 20190408
  Receipt Date: 20190408
  Transmission Date: 20190711
  Serious: Yes (Other)
  Sender: FDA-Public Use
  Company Number: US-BAYER-2019-065096

PATIENT
  Sex: Female

DRUGS (2)
  1. ACETYLSALICYLIC ACID (CARDIO) [Suspect]
     Active Substance: ASPIRIN
     Indication: ANTICOAGULANT THERAPY
     Dosage: UNK
  2. WARFARIN [Interacting]
     Active Substance: WARFARIN
     Indication: ANTICOAGULANT THERAPY

REACTIONS (2)
  - Labelled drug-drug interaction medication error [None]
  - Gastrointestinal haemorrhage [None]
